FAERS Safety Report 6533360-6 (Version None)
Quarter: 2010Q1

REPORT INFORMATION
  Report Type: 
  Country: None (occurrence: None)
  Receive Date: 20100111
  Receipt Date: 20091229
  Transmission Date: 20100710
  Serious: Yes (Other)
  Sender: FDA-Public Use
  Company Number: B0624269A

PATIENT

DRUGS (7)
  1. BUSULPHAN [Suspect]
     Route: 065
  2. FLUDARABINE [Concomitant]
     Route: 065
  3. CYCLOSPORINE [Concomitant]
     Indication: PROPHYLAXIS AGAINST TRANSPLANT REJECTION
     Route: 065
  4. PHENYTOIN [Concomitant]
     Indication: PROPHYLAXIS
     Route: 065
  5. ACYCLOVIR [Concomitant]
     Route: 065
  6. FLUCONAZOLE [Concomitant]
     Route: 065
  7. CIPROFLOXACIN [Concomitant]
     Route: 065

REACTIONS (2)
  - DRUG TOXICITY [None]
  - NERVOUS SYSTEM DISORDER [None]
